FAERS Safety Report 7446151-9 (Version None)
Quarter: 2011Q2

REPORT INFORMATION
  Report Type: 
  Country: None (occurrence: None)
  Receive Date: 20110429
  Receipt Date: 20110418
  Transmission Date: 20111010
  Serious: Yes (Hospitalization)
  Sender: FDA-Public Use
  Company Number: B0714445A

PATIENT
  Sex: Female

DRUGS (1)
  1. ZELITREX [Suspect]
     Route: 048
     Dates: end: 20110418

REACTIONS (2)
  - MENINGITIS [None]
  - CONFUSIONAL STATE [None]
